FAERS Safety Report 26213196 (Version 1)
Quarter: 2025Q4

REPORT INFORMATION
  Report Type: Spontaneous
  Country: CA (occurrence: CA)
  Receive Date: 20251230
  Receipt Date: 20251230
  Transmission Date: 20260119
  Serious: Yes (Death, Life-Threatening, Hospitalization, Disabling, Congenital Anomaly, Other)
  Sender: AUROBINDO
  Company Number: CA-AUROBINDO-AUR-APL-2020-003529

PATIENT
  Age: 43 Year
  Sex: Female
  Weight: 96 kg

DRUGS (26)
  1. METHOTREXATE [Suspect]
     Active Substance: METHOTREXATE
     Indication: Rheumatoid arthritis
     Dosage: 20 MILLIGRAM, ONCE A DAY
     Route: 061
  2. METHOTREXATE [Suspect]
     Active Substance: METHOTREXATE
     Dosage: 25 MILLIGRAM, ONCE A DAY
     Route: 061
  3. METHOTREXATE [Suspect]
     Active Substance: METHOTREXATE
     Dosage: 200 MILLIGRAM, ONCE A DAY
     Route: 061
  4. METHOTREXATE [Suspect]
     Active Substance: METHOTREXATE
     Dosage: 20 MILLIGRAM, EVERY WEEK
     Route: 061
  5. METHOTREXATE [Suspect]
     Active Substance: METHOTREXATE
     Dosage: UNK
  6. METHOTREXATE [Suspect]
     Active Substance: METHOTREXATE
     Dosage: 20 MILLIGRAM
     Route: 061
  7. METHOTREXATE [Suspect]
     Active Substance: METHOTREXATE
     Dosage: UNK
     Route: 065
  8. METHOTREXATE [Suspect]
     Active Substance: METHOTREXATE
     Dosage: 25 DOSAGE FORM
     Route: 061
  9. METHOTREXATE [Suspect]
     Active Substance: METHOTREXATE
     Dosage: 20 DOSAGE FORM, ONCE A DAY
     Route: 061
  10. METHOTREXATE [Suspect]
     Active Substance: METHOTREXATE
     Dosage: 500 MILLIGRAM
     Route: 065
  11. METHOTREXATE [Suspect]
     Active Substance: METHOTREXATE
     Dosage: 20 MILLIGRAM
  12. METHOTREXATE [Suspect]
     Active Substance: METHOTREXATE
     Dosage: 25 MILLIGRAM
     Route: 061
  13. ALENDRONIC ACID [Suspect]
     Active Substance: ALENDRONIC ACID
     Indication: Rheumatoid arthritis
     Dosage: UNK
     Route: 061
  14. ALENDRONIC ACID [Suspect]
     Active Substance: ALENDRONIC ACID
     Dosage: 5 MILLIGRAM, TWO TIMES A DAY
     Route: 061
  15. ALENDRONIC ACID [Suspect]
     Active Substance: ALENDRONIC ACID
     Dosage: UNK
  16. ALENDRONIC ACID [Suspect]
     Active Substance: ALENDRONIC ACID
     Dosage: UNK
     Route: 065
  17. CELECOXIB [Suspect]
     Active Substance: CELECOXIB
     Indication: Product used for unknown indication
     Dosage: UNK
     Route: 065
  18. HYDROCORTISONE [Suspect]
     Active Substance: HYDROCORTISONE
     Indication: Rheumatoid arthritis
     Dosage: UNK
     Route: 061
  19. HYDROCORTISONE [Suspect]
     Active Substance: HYDROCORTISONE
     Dosage: UNK
     Route: 050
  20. MOXIFLOXACIN [Suspect]
     Active Substance: MOXIFLOXACIN
     Indication: Product used for unknown indication
     Dosage: UNK
  21. PANTOPRAZOLE [Suspect]
     Active Substance: PANTOPRAZOLE
     Indication: Product used for unknown indication
     Dosage: UNK
     Route: 065
  22. RAMIPRIL [Suspect]
     Active Substance: RAMIPRIL
     Indication: Product used for unknown indication
     Dosage: UNK
     Route: 065
  23. RAMIPRIL [Suspect]
     Active Substance: RAMIPRIL
     Dosage: UNK
  24. QUETIAPINE [Suspect]
     Active Substance: QUETIAPINE
     Indication: Rheumatoid arthritis
     Dosage: UNK
     Route: 065
  25. QUETIAPINE [Suspect]
     Active Substance: QUETIAPINE
     Dosage: UNK
     Route: 061
  26. QUETIAPINE [Suspect]
     Active Substance: QUETIAPINE
     Dosage: UNK

REACTIONS (134)
  - Duodenal ulcer perforation [Fatal]
  - Deep vein thrombosis postoperative [Fatal]
  - Musculoskeletal stiffness [Fatal]
  - Dyspnoea [Fatal]
  - Drug hypersensitivity [Fatal]
  - Nasopharyngitis [Fatal]
  - Gait inability [Fatal]
  - Gastrointestinal disorder [Fatal]
  - Headache [Fatal]
  - Lower respiratory tract infection [Fatal]
  - Liver injury [Fatal]
  - Lung disorder [Fatal]
  - Muscle spasms [Fatal]
  - Muscle injury [Fatal]
  - Autoimmune disorder [Fatal]
  - Musculoskeletal pain [Fatal]
  - Nausea [Fatal]
  - Night sweats [Fatal]
  - Oedema peripheral [Fatal]
  - Obesity [Fatal]
  - Oedema [Fatal]
  - Osteoarthritis [Fatal]
  - Pemphigus [Fatal]
  - Pain [Fatal]
  - Paraesthesia [Fatal]
  - Pericarditis [Fatal]
  - Peripheral venous disease [Fatal]
  - Contusion [Fatal]
  - Irritable bowel syndrome [Fatal]
  - Chest pain [Fatal]
  - Decreased appetite [Fatal]
  - Arthropathy [Fatal]
  - Abdominal discomfort [Fatal]
  - Ill-defined disorder [Fatal]
  - Pruritus [Fatal]
  - Stomatitis [Fatal]
  - Synovitis [Fatal]
  - Systemic lupus erythematosus [Fatal]
  - Wound [Fatal]
  - Sleep disorder due to general medical condition, insomnia type [Fatal]
  - Sinusitis [Fatal]
  - Discomfort [Fatal]
  - Rheumatoid factor positive [Fatal]
  - Alopecia [Fatal]
  - Blister [Fatal]
  - Helicobacter infection [Fatal]
  - Hepatic enzyme increased [Fatal]
  - Hypersensitivity [Fatal]
  - Rash [Fatal]
  - Arthralgia [Fatal]
  - Rheumatoid arthritis [Fatal]
  - Hip arthroplasty [Fatal]
  - Knee arthroplasty [Fatal]
  - Swelling [Fatal]
  - Anti-cyclic citrullinated peptide antibody positive [Fatal]
  - Glossodynia [Fatal]
  - Confusional state [Fatal]
  - Infection [Fatal]
  - Folliculitis [Fatal]
  - Hand deformity [Fatal]
  - Impaired healing [Fatal]
  - Infusion related reaction [Fatal]
  - Joint swelling [Fatal]
  - Drug intolerance [Fatal]
  - Pyrexia [Fatal]
  - Urticaria [Fatal]
  - Weight increased [Fatal]
  - Condition aggravated [Fatal]
  - Injury [Fatal]
  - General physical health deterioration [Fatal]
  - Fatigue [Fatal]
  - Blood cholesterol increased [Fatal]
  - Vomiting [Fatal]
  - Psoriatic arthropathy [Fatal]
  - Wheezing [Fatal]
  - C-reactive protein abnormal [Fatal]
  - Lip dry [Fatal]
  - Asthenia [Fatal]
  - Abdominal pain upper [Fatal]
  - Diarrhoea [Fatal]
  - Dizziness [Fatal]
  - Dry mouth [Fatal]
  - Fibromyalgia [Fatal]
  - Rheumatic fever [Fatal]
  - Asthma [Fatal]
  - Hypoaesthesia [Fatal]
  - Mobility decreased [Fatal]
  - Lower limb fracture [Fatal]
  - Loss of personal independence in daily activities [Fatal]
  - Bronchitis [Fatal]
  - Hypertension [Fatal]
  - Sciatica [Fatal]
  - Swollen joint count increased [Fatal]
  - Type 2 diabetes mellitus [Fatal]
  - Anxiety [Fatal]
  - C-reactive protein [Fatal]
  - Live birth [Fatal]
  - Liver disorder [Fatal]
  - Malaise [Fatal]
  - Amnesia [Fatal]
  - Bone erosion [Fatal]
  - Laryngitis [Fatal]
  - Breast cancer stage III [Fatal]
  - Drug-induced liver injury [Fatal]
  - Insomnia [Fatal]
  - Thrombocytopenia [Fatal]
  - Crohn^s disease [Fatal]
  - Lupus-like syndrome [Fatal]
  - Ear infection [Fatal]
  - Exostosis [Fatal]
  - Foot deformity [Fatal]
  - Hepatic cirrhosis [Fatal]
  - Road traffic accident [Fatal]
  - Drug ineffective [Fatal]
  - Treatment failure [Fatal]
  - Therapeutic product effect incomplete [Fatal]
  - Maternal exposure during pregnancy [Fatal]
  - Therapeutic product effect decreased [Fatal]
  - Exposure during pregnancy [Fatal]
  - Hypercholesterolaemia [Fatal]
  - Joint dislocation [Fatal]
  - Liver function test increased [Fatal]
  - X-ray abnormal [Fatal]
  - Disability [Fatal]
  - White blood cell count increased [Fatal]
  - Anti-cyclic citrullinated peptide antibody [Fatal]
  - Joint range of motion decreased [Not Recovered/Not Resolved]
  - Pregnancy [Not Recovered/Not Resolved]
  - Abdominal pain [Not Recovered/Not Resolved]
  - Bursitis [Not Recovered/Not Resolved]
  - Facet joint syndrome [Not Recovered/Not Resolved]
  - Inflammation [Not Recovered/Not Resolved]
  - Dyspepsia [Not Recovered/Not Resolved]
  - Maternal exposure timing unspecified [Not Recovered/Not Resolved]
